FAERS Safety Report 24642210 (Version 1)
Quarter: 2024Q4

REPORT INFORMATION
  Report Type: Spontaneous
  Country: US (occurrence: None)
  Receive Date: 20241119
  Receipt Date: 20241119
  Transmission Date: 20250114
  Serious: No
  Sender: Public
  Company Number: None

PATIENT
  Age: 60 Year
  Sex: Female

DRUGS (3)
  1. CAMZYOS [Suspect]
     Active Substance: MAVACAMTEN
     Indication: Hypertrophic cardiomyopathy
     Dates: start: 20241106
  2. Bisoprolol 5 mg [Concomitant]
     Dates: start: 20231211
  3. LISINOPRIL [Concomitant]
     Active Substance: LISINOPRIL
     Dates: start: 20231230

REACTIONS (3)
  - Headache [None]
  - Therapy change [None]
  - Treatment delayed [None]

NARRATIVE: CASE EVENT DATE: 20241118
